FAERS Safety Report 5418129-8 (Version None)
Quarter: 2007Q3

REPORT INFORMATION
  Report Type: 
  Country: None (occurrence: None)
  Receive Date: 20070817
  Receipt Date: 20070809
  Transmission Date: 20080115
  Serious: Yes (Hospitalization, Other)
  Sender: FDA-Public Use
  Company Number: IT-ABBOTT-07P-083-0371094-00

PATIENT
  Sex: Male
  Weight: 5.4 kg

DRUGS (1)
  1. ERITROCINA SUSPENSION [Suspect]
     Indication: PERTUSSIS
     Route: 048
     Dates: start: 20070417, end: 20070427

REACTIONS (4)
  - METABOLIC ALKALOSIS [None]
  - PYLORIC STENOSIS [None]
  - VOMITING [None]
  - WEIGHT DECREASED [None]
